FAERS Safety Report 12827154 (Version 1)
Quarter: 2016Q4

REPORT INFORMATION
  Report Type: Spontaneous
  Country: US (occurrence: US)
  Receive Date: 20161007
  Receipt Date: 20161007
  Transmission Date: 20170207
  Serious: No
  Sender: FDA-Public Use
  Company Number: US-INDIVIOR LIMITED-INDV-086149-2015

PATIENT
  Age: 21 Year
  Sex: Male

DRUGS (2)
  1. SUBOXONE [Suspect]
     Active Substance: BUPRENORPHINE HYDROCHLORIDE\NALOXONE HYDROCHLORIDE
     Indication: DRUG DEPENDENCE
     Dosage: ORDERED TO TAKE 16MG DAILY AS 4 MG EVERY 6 HOURS
     Route: 060
     Dates: start: 20151128
  2. PERCOCET [Suspect]
     Active Substance: ACETAMINOPHEN\OXYCODONE HYDROCHLORIDE
     Indication: PRODUCT USED FOR UNKNOWN INDICATION
     Dosage: ONCE
     Route: 065
     Dates: start: 20151203, end: 20151203

REACTIONS (6)
  - Intentional underdose [Unknown]
  - Malaise [Unknown]
  - Product preparation error [Not Recovered/Not Resolved]
  - Drug abuse [Recovered/Resolved]
  - Drug withdrawal syndrome [Unknown]
  - Product use issue [Not Recovered/Not Resolved]

NARRATIVE: CASE EVENT DATE: 2015
